FAERS Safety Report 9693418 (Version 1)
Quarter: 2013Q4

REPORT INFORMATION
  Report Type: Spontaneous
  Country: CN (occurrence: CN)
  Receive Date: 20131118
  Receipt Date: 20131118
  Transmission Date: 20140711
  Serious: Yes (Life-Threatening)
  Sender: FDA-Public Use
  Company Number: CN-BAYER-2013-139947

PATIENT
  Age: 56 Year
  Sex: Female

DRUGS (2)
  1. ULTRAVIST [Suspect]
     Indication: COMPUTERISED TOMOGRAM
     Dosage: 100 ML, ONCE
     Dates: start: 20131114, end: 20131114
  2. ULTRAVIST [Suspect]
     Indication: CHEST DISCOMFORT

REACTIONS (4)
  - Dyspnoea [Recovering/Resolving]
  - Apathy [Recovering/Resolving]
  - Cyanosis [Recovering/Resolving]
  - Blood pressure immeasurable [Recovering/Resolving]
